FAERS Safety Report 23964740 (Version 2)
Quarter: 2024Q3

REPORT INFORMATION
  Report Type: Report from Study
  Country: US (occurrence: US)
  Receive Date: 20240612
  Receipt Date: 20240715
  Transmission Date: 20241016
  Serious: Yes (Hospitalization)
  Sender: ABBVIE
  Company Number: US-ABBVIE-5732888

PATIENT
  Age: 19 Year
  Sex: Male
  Weight: 80 kg

DRUGS (15)
  1. HUMIRA [Suspect]
     Active Substance: ADALIMUMAB
     Indication: Crohn^s disease
     Dosage: ONCE
     Route: 058
     Dates: start: 20180716, end: 20180716
  2. HUMIRA [Suspect]
     Active Substance: ADALIMUMAB
     Dosage: ONCE
     Route: 058
     Dates: start: 201807, end: 201807
  3. HUMIRA [Suspect]
     Active Substance: ADALIMUMAB
     Route: 058
     Dates: start: 201808, end: 20200824
  4. ALBUTEROL [Concomitant]
     Active Substance: ALBUTEROL
     Indication: Bronchospasm
     Dosage: TIME INTERVAL: AS NECESSARY
     Route: 055
     Dates: start: 2007, end: 2018
  5. ALBUTEROL [Concomitant]
     Active Substance: ALBUTEROL
     Indication: Bronchospasm
     Dosage: TIME INTERVAL: AS NECESSARY: 4 PUFFS
     Route: 055
     Dates: start: 2018
  6. FEXOFENADINE;PSEUDOEPHEDRINE [Concomitant]
     Indication: Seasonal allergy
     Dosage: 1 TABLET
     Route: 048
     Dates: start: 2018
  7. FERROUS SULFATE [Concomitant]
     Active Substance: FERROUS SULFATE
     Indication: Mineral supplementation
     Dosage: 1 TABLET
     Route: 048
     Dates: start: 2019
  8. ONDANSETRON [Concomitant]
     Active Substance: ONDANSETRON
     Indication: Nausea
     Dosage: TIME INTERVAL: AS NECESSARY
     Route: 048
     Dates: start: 20200127
  9. METHYLPHENIDATE [Concomitant]
     Active Substance: METHYLPHENIDATE
     Indication: Attention deficit hyperactivity disorder
     Route: 048
     Dates: start: 20210506, end: 20210816
  10. METHYLPHENIDATE [Concomitant]
     Active Substance: METHYLPHENIDATE
     Indication: Attention deficit hyperactivity disorder
     Route: 048
     Dates: start: 20210816
  11. AZATHIOPRINE [Suspect]
     Active Substance: AZATHIOPRINE
     Indication: Crohn^s disease
     Route: 048
     Dates: start: 20160630, end: 201807
  12. BUDESONIDE [Concomitant]
     Active Substance: BUDESONIDE
     Indication: Eosinophilic oesophagitis
     Route: 048
     Dates: start: 2014
  13. VITAMINS [Concomitant]
     Active Substance: VITAMINS
     Indication: Crohn^s disease
     Dosage: PEDIATRIC MULTIVITAMIN?DOSE-1 TABLET
     Route: 048
     Dates: start: 2013
  14. ACETAMINOPHEN [Concomitant]
     Active Substance: ACETAMINOPHEN
     Indication: Prophylaxis
     Dosage: TIME INTERVAL: AS NECESSARY
     Route: 048
     Dates: start: 20240212, end: 20240214
  15. CEFOXITIN [Concomitant]
     Active Substance: CEFOXITIN SODIUM
     Indication: Prophylaxis
     Dosage: TIME INTERVAL: AS NECESSARY
     Route: 040
     Dates: start: 20240212, end: 20240212

REACTIONS (1)
  - Intestinal stenosis [Recovered/Resolved]

NARRATIVE: CASE EVENT DATE: 20240212
